FAERS Safety Report 25823754 (Version 1)
Quarter: 2025Q3

REPORT INFORMATION
  Report Type: Spontaneous
  Country: US (occurrence: None)
  Receive Date: 20250918
  Receipt Date: 20250918
  Transmission Date: 20251020
  Serious: Yes (Other)
  Sender: FDA-CTU
  Company Number: None

PATIENT
  Age: 7 Month
  Sex: Female
  Weight: 61.5 kg

DRUGS (1)
  1. FERUMOXYTOL [Suspect]
     Active Substance: FERUMOXYTOL
     Indication: Iron deficiency
     Route: 042
     Dates: start: 20250910, end: 20250910

REACTIONS (11)
  - Exposure during pregnancy [None]
  - Infusion related reaction [None]
  - Infusion site pain [None]
  - Infusion site extravasation [None]
  - Infusion site pain [None]
  - Feeling hot [None]
  - Cold sweat [None]
  - Dizziness [None]
  - Dyspnoea [None]
  - Therapy interrupted [None]
  - Foetal heart rate acceleration abnormality [None]

NARRATIVE: CASE EVENT DATE: 20250910
